FAERS Safety Report 25060856 (Version 1)
Quarter: 2025Q1

REPORT INFORMATION
  Report Type: Spontaneous
  Country: ES (occurrence: ES)
  Receive Date: 20250310
  Receipt Date: 20250310
  Transmission Date: 20250408
  Serious: Yes (Other)
  Sender: PFIZER
  Company Number: ES-PFIZER INC-202500050961

PATIENT
  Age: 64 Year
  Sex: Male

DRUGS (1)
  1. METHOTREXATE SODIUM [Suspect]
     Active Substance: METHOTREXATE SODIUM
     Indication: VEXAS syndrome
     Dosage: 15 MG, WEEKLY
     Route: 048

REACTIONS (3)
  - Acute respiratory failure [Unknown]
  - Drug effective for unapproved indication [Unknown]
  - Off label use [Unknown]
